FAERS Safety Report 4264608-9 (Version None)
Quarter: 2004Q1

REPORT INFORMATION
  Report Type: 
  Country: None (occurrence: None)
  Receive Date: 20040106
  Receipt Date: 20031224
  Transmission Date: 20041129
  Serious: Yes (Hospitalization)
  Sender: FDA-Public Use
  Company Number: JP-ROCHE-354770

PATIENT
  Age: 77 Year
  Sex: Female

DRUGS (11)
  1. PANALDINE [Suspect]
     Indication: CORONARY ANGIOPLASTY
     Route: 048
     Dates: start: 20031107, end: 20031127
  2. ARTIST [Concomitant]
     Route: 048
     Dates: start: 20020615
  3. NEUER [Concomitant]
     Route: 048
     Dates: start: 20020615
  4. HORIZON [Concomitant]
     Route: 048
     Dates: start: 20020615
  5. ALYSE S [Concomitant]
     Route: 048
     Dates: start: 20020615
  6. GLYBURIDE [Concomitant]
     Dates: start: 20020615
  7. FAMOTIDINE [Concomitant]
     Route: 048
     Dates: start: 20020615
  8. DIOVAN [Concomitant]
     Dates: start: 20031107
  9. WARFARIN SODIUM [Concomitant]
     Dates: start: 20031107
  10. FRANDOL [Concomitant]
     Indication: ANGINA PECTORIS
     Route: 061
     Dates: start: 20031107
  11. ACECOL [Concomitant]
     Dates: start: 20031107, end: 20031127

REACTIONS (7)
  - ANAEMIA [None]
  - APLASIA PURE RED CELL [None]
  - CHEST PAIN [None]
  - DYSPNOEA [None]
  - LEUKOPENIA [None]
  - RENAL IMPAIRMENT [None]
  - THROMBOSIS [None]
